FAERS Safety Report 13666805 (Version 1)
Quarter: 2017Q2

REPORT INFORMATION
  Report Type: Spontaneous
  Country: US (occurrence: US)
  Receive Date: 20170619
  Receipt Date: 20170619
  Transmission Date: 20170830
  Serious: No
  Sender: FDA-Public Use
  Company Number: US-ROCHE-1567046

PATIENT
  Age: 76 Year
  Sex: Female

DRUGS (2)
  1. XELODA [Suspect]
     Active Substance: CAPECITABINE
     Indication: PRODUCT USED FOR UNKNOWN INDICATION
     Dosage: TAKES 2 PILLS X7 DAYS, 4 PILLS X5 DAYS PRESCRIBED
     Route: 065
  2. XENICAL [Concomitant]
     Active Substance: ORLISTAT

REACTIONS (1)
  - Perfume sensitivity [Not Recovered/Not Resolved]

NARRATIVE: CASE EVENT DATE: 20150421
